FAERS Safety Report 5303191-3 (Version None)
Quarter: 2007Q2

REPORT INFORMATION
  Report Type: 
  Country: None (occurrence: None)
  Receive Date: 20070420
  Receipt Date: 20070411
  Transmission Date: 20071010
  Serious: Yes (Hospitalization)
  Sender: FDA-Public Use
  Company Number: JP-ROCHE-485343

PATIENT
  Age: 67 Year
  Sex: Male
  Weight: 54.9 kg

DRUGS (5)
  1. CAPECITABINE [Suspect]
     Dosage: 2000 MG/M2/DAY ADMINISTERED FROM EVENING OF DAY 1 TO MORNING OF DAY 15 OF THREE WEEK CYCLE AS PER P+
     Route: 048
     Dates: start: 20060802
  2. CAPECITABINE [Suspect]
     Dosage: FIFTH COURSE STARTED WITH 75% DOSE REDUCTION.
     Route: 048
     Dates: start: 20061023
  3. CAPECITABINE [Suspect]
     Dosage: SIXTH COURSE STARTED WITH 50% DOSE REDUCTION.
     Route: 048
     Dates: start: 20061122, end: 20070301
  4. BEVACIZUMAB [Suspect]
     Dosage: 7.5 MG/KG ADMINISTERED ON DAY 1 OF EVERY 3 WEEK CYCLE AS PER PROTOCOL.
     Route: 042
     Dates: start: 20060802
  5. OXALIPLATIN [Suspect]
     Dosage: 130 MG/M2 ADMINISTERED ON DAY 1 OF EVERY 3 WEEK CYCLE AS PER PROTOCOL.
     Route: 042
     Dates: start: 20060802

REACTIONS (1)
  - GASTRIC VARICES HAEMORRHAGE [None]
